FAERS Safety Report 13013937 (Version 2)
Quarter: 2017Q1

REPORT INFORMATION
  Report Type: Spontaneous
  Country: US (occurrence: US)
  Receive Date: 20161209
  Receipt Date: 20170317
  Transmission Date: 20170428
  Serious: Yes (Other)
  Sender: FDA-Public Use
  Company Number: US-BAYER-2016-233360

PATIENT
  Age: 20 Year
  Sex: Female
  Weight: 70.3 kg

DRUGS (6)
  1. ROCEPHIN [Concomitant]
     Active Substance: CEFTRIAXONE SODIUM
  2. MIRENA [Suspect]
     Active Substance: LEVONORGESTREL
     Indication: CONTRACEPTION
     Dosage: 20 MCG/24HR, CONT
     Route: 015
     Dates: start: 20150427, end: 20160126
  3. CEFTRIAXONE SODIUM. [Concomitant]
     Active Substance: CEFTRIAXONE SODIUM
     Dosage: 250 MG, UNK
  4. IBUPROFEN. [Concomitant]
     Active Substance: IBUPROFEN
     Indication: DYSMENORRHOEA
  5. TYLENOL [Concomitant]
     Active Substance: ACETAMINOPHEN
     Indication: DYSMENORRHOEA
  6. DOXYCYCLINE MONOHYDRATE [DOXYCYCLINE MONOHYDRATE] [Concomitant]
     Dosage: 100 MG, BID

REACTIONS (4)
  - Device issue [None]
  - Uterine perforation [Unknown]
  - Pelvic inflammatory disease [None]
  - Abdominal pain lower [Unknown]

NARRATIVE: CASE EVENT DATE: 2015
